FAERS Safety Report 16653462 (Version 2)
Quarter: 2019Q3

REPORT INFORMATION
  Report Type: Spontaneous
  Country: TR (occurrence: TR)
  Receive Date: 20190731
  Receipt Date: 20190909
  Transmission Date: 20191004
  Serious: Yes (Life-Threatening, Hospitalization, Other)
  Sender: FDA-Public Use
  Company Number: TR-PFIZER INC-2019325430

PATIENT
  Age: 45 Year
  Sex: Male
  Weight: 100 kg

DRUGS (2)
  1. DOSTINEX [Suspect]
     Active Substance: CABERGOLINE
     Indication: PROLACTIN-PRODUCING PITUITARY TUMOUR
     Dosage: 1.5 UNK, UNK
     Route: 048
  2. DOSTINEX [Suspect]
     Active Substance: CABERGOLINE
     Indication: PITUITARY TUMOUR BENIGN

REACTIONS (6)
  - Sleep disorder [Not Recovered/Not Resolved]
  - Obsessive thoughts [Not Recovered/Not Resolved]
  - Suicidal ideation [Not Recovered/Not Resolved]
  - Hallucination [Not Recovered/Not Resolved]
  - Depression [Not Recovered/Not Resolved]
  - Personality disorder [Not Recovered/Not Resolved]

NARRATIVE: CASE EVENT DATE: 20180610
